FAERS Safety Report 17039588 (Version 1)
Quarter: 2019Q4

REPORT INFORMATION
  Report Type: Report from Study
  Country: None (occurrence: DE)
  Receive Date: 20191115
  Receipt Date: 20191115
  Transmission Date: 20200122
  Serious: Yes (Death, Other)
  Sender: FDA-Public Use
  Company Number: DE-ABBVIE-19K-062-3001669-00

PATIENT
  Age: 83 Year
  Sex: Male

DRUGS (1)
  1. LEVODOPA/CARBIDOPA [Suspect]
     Active Substance: CARBIDOPA\LEVODOPA
     Indication: PARKINSON^S DISEASE
     Dosage: MD 6.8 ML/H; CRD 3.6 ML/H; ED 1.5 ML
     Route: 050
     Dates: start: 20190826

REACTIONS (2)
  - Death [Fatal]
  - Femoral neck fracture [Unknown]

NARRATIVE: CASE EVENT DATE: 201909
